FAERS Safety Report 23110523 (Version 2)
Quarter: 2023Q4

REPORT INFORMATION
  Report Type: Spontaneous
  Country: US (occurrence: US)
  Receive Date: 20231026
  Receipt Date: 20231129
  Transmission Date: 20240110
  Serious: No
  Sender: FDA-Public Use
  Company Number: US-Dermavant-000834

PATIENT
  Age: 61 Year
  Sex: Male

DRUGS (7)
  1. TAPINAROF [Suspect]
     Active Substance: TAPINAROF
  2. LANSOPRAZOLE [Concomitant]
     Active Substance: LANSOPRAZOLE
  3. LISINOPRIL [Concomitant]
     Active Substance: LISINOPRIL
  4. PIROXICAM [Concomitant]
     Active Substance: PIROXICAM
  5. ROSUVASTATIN [Concomitant]
     Active Substance: ROSUVASTATIN
  6. XANAX [Concomitant]
     Active Substance: ALPRAZOLAM
  7. Centrum silver MV [Concomitant]

REACTIONS (1)
  - Peripheral swelling [Unknown]
